FAERS Safety Report 4943963-8 (Version None)
Quarter: 2006Q1

REPORT INFORMATION
  Report Type: 
  Country: None (occurrence: None)
  Receive Date: 20060313
  Receipt Date: 20060313
  Transmission Date: 20060701
  Serious: Yes (Hospitalization)
  Sender: FDA-Public Use
  Company Number: None

PATIENT
  Sex: Male
  Weight: 54.8852 kg

DRUGS (2)
  1. ACETADOTE [Suspect]
     Indication: OVERDOSE
     Dosage: 150 MG/KG, 50 MG/KG, 100 MG/KG BOLUS, OVER 4 HRS. OV IV DRIP
     Route: 041
     Dates: start: 20060212, end: 20060214
  2. ACETAMINOPHEN [Suspect]
     Dosage: ENTIRE BOTTLE OF 100 TABLETS PO
     Route: 048
     Dates: start: 20060212, end: 20060212

REACTIONS (5)
  - DRUG LEVEL ABOVE THERAPEUTIC [None]
  - HEPATIC ENZYME INCREASED [None]
  - INCORRECT DRUG ADMINISTRATION RATE [None]
  - INFUSION RELATED REACTION [None]
  - MEDICATION ERROR [None]
